FAERS Safety Report 24871912 (Version 2)
Quarter: 2025Q1

REPORT INFORMATION
  Report Type: Spontaneous
  Country: IN (occurrence: IN)
  Receive Date: 20250122
  Receipt Date: 20250124
  Transmission Date: 20250408
  Serious: Yes (Other)
  Sender: ROCHE
  Company Number: IN-ROCHE-10000178052

PATIENT
  Sex: Male

DRUGS (9)
  1. MYCOPHENOLATE MOFETIL [Suspect]
     Active Substance: MYCOPHENOLATE MOFETIL
     Indication: Prophylaxis against transplant rejection
     Route: 065
     Dates: start: 2014, end: 2016
  2. MYCOPHENOLATE MOFETIL [Suspect]
     Active Substance: MYCOPHENOLATE MOFETIL
     Route: 065
     Dates: start: 202112
  3. AZATHIOPRINE [Concomitant]
     Active Substance: AZATHIOPRINE
  4. TACROLIMUS [Concomitant]
     Active Substance: TACROLIMUS
  5. EVEROLIMUS [Concomitant]
     Active Substance: EVEROLIMUS
  6. PREDNISOLONE [Concomitant]
     Active Substance: PREDNISOLONE
  7. METHYLPREDNISOLONE [Concomitant]
     Active Substance: METHYLPREDNISOLONE
  8. CYCLOSPORINE [Concomitant]
     Active Substance: CYCLOSPORINE
  9. GRAFALON [Concomitant]
     Active Substance: LAPINE T-LYMPHOCYTE IMMUNE GLOBULIN

REACTIONS (2)
  - Hypovolaemic shock [Unknown]
  - Gastrointestinal disorder [Unknown]
